FAERS Safety Report 4851342-7 (Version None)
Quarter: 2005Q4

REPORT INFORMATION
  Report Type: 
  Country: None (occurrence: None)
  Receive Date: 20051209
  Receipt Date: 20051130
  Transmission Date: 20060501
  Serious: Yes (Other)
  Sender: FDA-Public Use
  Company Number: 2005-11-1859

PATIENT
  Sex: Male

DRUGS (1)
  1. INTRON A [Suspect]
     Dates: start: 20030101

REACTIONS (2)
  - DERMATITIS EXFOLIATIVE [None]
  - PAIN OF SKIN [None]
